FAERS Safety Report 21627883 (Version 1)
Quarter: 2022Q4

REPORT INFORMATION
  Report Type: Report from Study
  Country: US (occurrence: US)
  Receive Date: 20221122
  Receipt Date: 20221122
  Transmission Date: 20230113
  Serious: Yes (Other)
  Sender: FDA-Public Use
  Company Number: US-MYLANLABS-2022M1130039

PATIENT
  Sex: Male

DRUGS (6)
  1. PROCHLORPERAZINE [Suspect]
     Active Substance: PROCHLORPERAZINE
     Indication: Vomiting
     Dosage: UNK
     Route: 065
     Dates: start: 202210
  2. REMODULIN [Concomitant]
     Active Substance: TREPROSTINIL
     Indication: Pulmonary arterial hypertension
     Dosage: 0.025 MICROGRAM/KILOGRAM AT AN INFUSION RATE OF 27 ML/24 HOURS
     Route: 042
     Dates: start: 202204
  3. REMODULIN [Concomitant]
     Active Substance: TREPROSTINIL
     Indication: Pulmonary arterial hypertension
     Dosage: UNK
     Route: 042
     Dates: start: 2022
  4. ZOFRAN [Concomitant]
     Active Substance: ONDANSETRON HYDROCHLORIDE
     Indication: Vomiting
     Dosage: UNK
     Route: 048
     Dates: start: 2022
  5. DEVICE\POLYURETHANE [Concomitant]
     Active Substance: DEVICE\POLYURETHANE
     Indication: Product used for unknown indication
     Dosage: UNK
     Route: 065
     Dates: start: 2022
  6. Tegaderm foam adhesive [Concomitant]
     Dosage: UNK
     Route: 065

REACTIONS (1)
  - Restless legs syndrome [Unknown]
